FAERS Safety Report 11699142 (Version 2)
Quarter: 2015Q4

REPORT INFORMATION
  Report Type: Spontaneous
  Country: US (occurrence: US)
  Receive Date: 20151104
  Receipt Date: 20151104
  Transmission Date: 20160304
  Serious: No
  Sender: FDA-Public Use
  Company Number: US-ANTARES PHARMA, INC.-2015-LIT-ME-0068

PATIENT
  Sex: Male

DRUGS (1)
  1. METHOTREXATE [Suspect]
     Active Substance: METHOTREXATE

REACTIONS (9)
  - Visual impairment [None]
  - Product contamination [None]
  - Off label use [None]
  - IRVAN syndrome [None]
  - Eye pain [None]
  - Intravitreal implant [None]
  - Endophthalmitis [None]
  - Bacterial infection [None]
  - Ocular hyperaemia [None]
